FAERS Safety Report 4533154-7 (Version None)
Quarter: 2004Q4

REPORT INFORMATION
  Report Type: 
  Country: None (occurrence: None)
  Receive Date: 20041210
  Receipt Date: 20040831
  Transmission Date: 20050328
  Serious: Yes (Hospitalization)
  Sender: FDA-Public Use
  Company Number: 2004-00454

PATIENT
  Age: 74 Year
  Sex: Female

DRUGS (5)
  1. VELCADE [Suspect]
     Indication: MULTIPLE MYELOMA
  2. DECADRON [Suspect]
     Indication: MULTIPLE MYELOMA
  3. AREDIA [Concomitant]
  4. LOPERAMIDE HCL [Concomitant]
  5. ARANESP [Concomitant]

REACTIONS (5)
  - DEHYDRATION [None]
  - DIARRHOEA [None]
  - HAEMOGLOBIN [None]
  - INSOMNIA [None]
  - PARAESTHESIA [None]
